FAERS Safety Report 8001161-8 (Version None)
Quarter: 2011Q4

REPORT INFORMATION
  Report Type: 
  Country: None (occurrence: None)
  Receive Date: 20111222
  Receipt Date: 20111214
  Transmission Date: 20120403
  Serious: Yes (Death, Other)
  Sender: FDA-Public Use
  Company Number: NO-BAXTER-2011BH038971

PATIENT
  Age: 54 Year
  Sex: Male

DRUGS (14)
  1. GAMMAGARD LIQUID [Suspect]
     Indication: HYPOGAMMAGLOBULINAEMIA
     Route: 042
     Dates: start: 20111117, end: 20111117
  2. GAMMAGARD LIQUID [Suspect]
     Route: 042
     Dates: start: 20111006
  3. PREDNISOLONE [Concomitant]
     Indication: PRODUCT USED FOR UNKNOWN INDICATION
     Route: 065
  4. RAMIPRIL [Concomitant]
     Indication: PRODUCT USED FOR UNKNOWN INDICATION
     Route: 065
  5. TETRACYCLINE [Concomitant]
     Indication: PRODUCT USED FOR UNKNOWN INDICATION
     Route: 065
  6. CALCIUM WITH VITAMIN D [Concomitant]
     Indication: PRODUCT USED FOR UNKNOWN INDICATION
     Route: 065
  7. AFI-FOLSYRE [Concomitant]
     Indication: PRODUCT USED FOR UNKNOWN INDICATION
     Route: 065
  8. WARFARIN SODIUM [Concomitant]
     Indication: PRODUCT USED FOR UNKNOWN INDICATION
     Route: 065
  9. GAMMAGARD LIQUID [Suspect]
     Indication: BLOOD IMMUNOGLOBULIN G DECREASED
     Route: 042
     Dates: start: 20111117, end: 20111117
  10. NEXIUM [Concomitant]
     Indication: PRODUCT USED FOR UNKNOWN INDICATION
     Route: 065
  11. METHOTREXATE [Concomitant]
     Indication: PRODUCT USED FOR UNKNOWN INDICATION
     Route: 065
  12. GAMMAGARD LIQUID [Suspect]
     Route: 042
     Dates: start: 20111006
  13. LIPITOR [Concomitant]
     Indication: PRODUCT USED FOR UNKNOWN INDICATION
     Route: 065
  14. ASPIRIN [Concomitant]
     Indication: PRODUCT USED FOR UNKNOWN INDICATION
     Route: 065

REACTIONS (6)
  - ACUTE MYOCARDIAL INFARCTION [None]
  - CARDIAC ARREST [None]
  - PULMONARY OEDEMA [None]
  - DYSPNOEA [None]
  - CHILLS [None]
  - CHEST PAIN [None]
